FAERS Safety Report 5862639-6 (Version None)
Quarter: 2008Q3

REPORT INFORMATION
  Report Type: 
  Country: None (occurrence: None)
  Receive Date: 20080828
  Receipt Date: 20080819
  Transmission Date: 20090109
  Serious: Yes (Other)
  Sender: FDA-Public Use
  Company Number: JP-JNJFOC-20080805016

PATIENT
  Sex: Male
  Weight: 63 kg

DRUGS (13)
  1. REMICADE [Suspect]
     Route: 042
  2. REMICADE [Suspect]
     Route: 042
  3. REMICADE [Suspect]
     Route: 042
  4. REMICADE [Suspect]
     Route: 042
  5. REMICADE [Suspect]
     Indication: BEHCET'S SYNDROME
     Route: 042
  6. KENACORT [Concomitant]
  7. KENACORT [Concomitant]
  8. KENACORT [Concomitant]
  9. KENACORT [Concomitant]
     Indication: BEHCET'S SYNDROME
  10. BETAMETHASONE [Concomitant]
  11. BETAMETHASONE [Concomitant]
  12. BETAMETHASONE [Concomitant]
     Indication: BEHCET'S SYNDROME
  13. RHEUMATREX [Concomitant]
     Indication: BEHCET'S SYNDROME
     Route: 048

REACTIONS (1)
  - MACULOPATHY [None]
